FAERS Safety Report 7773702-7 (Version None)
Quarter: 2011Q3

REPORT INFORMATION
  Report Type: 
  Country: None (occurrence: None)
  Receive Date: 20110920
  Receipt Date: 20110907
  Transmission Date: 20111222
  Serious: Yes (Hospitalization)
  Sender: FDA-Public Use
  Company Number: TPA2011A05602

PATIENT
  Age: 69 Year
  Sex: Female
  Weight: 106.5953 kg

DRUGS (5)
  1. ACCOLATE [Concomitant]
  2. COUMADIN [Concomitant]
  3. DEXILANT [Suspect]
     Indication: GASTROOESOPHAGEAL REFLUX DISEASE
     Dosage: 60 MG, 1 IN 1 D, PER ORAL
     Route: 048
     Dates: start: 20110101
  4. CELEXA [Concomitant]
  5. ASPIRIN [Concomitant]

REACTIONS (3)
  - THROMBOSIS [None]
  - DYSGEUSIA [None]
  - HOT FLUSH [None]
